FAERS Safety Report 4842884-9 (Version None)
Quarter: 2005Q4

REPORT INFORMATION
  Report Type: 
  Country: None (occurrence: None)
  Receive Date: 20051201
  Receipt Date: 20051122
  Transmission Date: 20060501
  Serious: Yes (Other)
  Sender: FDA-Public Use
  Company Number: PHBS2005JP17356

PATIENT

DRUGS (6)
  1. SLOW-K [Suspect]
     Indication: ALKALOSIS
  2. MYSLEE [Concomitant]
  3. GASTER [Concomitant]
  4. LEXOTAN [Concomitant]
  5. LAC B [Concomitant]
  6. GLYCEOL [Concomitant]

REACTIONS (1)
  - ACIDOSIS [None]
